FAERS Safety Report 18797588 (Version 2)
Quarter: 2021Q1

REPORT INFORMATION
  Report Type: Other
  Country: US (occurrence: US)
  Receive Date: 20210128
  Receipt Date: 20210211
  Transmission Date: 20210419
  Serious: Yes (Other)
  Sender: FDA-Public Use
  Company Number: US-ROCHE-2752992

PATIENT
  Age: 49 Year
  Sex: Female
  Weight: 60.2 kg

DRUGS (4)
  1. DETROL [Concomitant]
     Active Substance: TOLTERODINE TARTRATE
  2. OCREVUS [Suspect]
     Active Substance: OCRELIZUMAB
     Indication: RELAPSING MULTIPLE SCLEROSIS
     Dosage: PRESCRIBED 300 MG.?ON 31/JUL.2020, RECEIVED OCRELIZUMAB OF AN UNKNOWN DOSAGE FORM.
     Route: 042
  3. LEVONORGESTREL. [Concomitant]
     Active Substance: LEVONORGESTREL
  4. BUSPAR [Concomitant]
     Active Substance: BUSPIRONE HYDROCHLORIDE

REACTIONS (2)
  - COVID-19 [Unknown]
  - Pneumonia [Unknown]

NARRATIVE: CASE EVENT DATE: 20201206
